FAERS Safety Report 19093955 (Version 2)
Quarter: 2021Q2

REPORT INFORMATION
  Report Type: Spontaneous
  Country: US (occurrence: US)
  Receive Date: 20210405
  Receipt Date: 20210625
  Transmission Date: 20210717
  Serious: Yes (Hospitalization)
  Sender: FDA-Public Use
  Company Number: US-TEVA-2021-US-1895693

PATIENT
  Age: 48 Year
  Sex: Male

DRUGS (10)
  1. FLUMAZENIL. [Suspect]
     Active Substance: FLUMAZENIL
     Indication: TOXICITY TO VARIOUS AGENTS
     Dosage: 01.MG
     Route: 065
  2. HYDROCODONE [Suspect]
     Active Substance: HYDROCODONE
     Indication: INTENTIONAL OVERDOSE
     Dosage: 75MG
     Route: 065
  3. FLUMAZENIL. [Suspect]
     Active Substance: FLUMAZENIL
     Dosage: AN ATTEMPTS OF DOSE REDUCTION ON THE THIRD, FOURTH AND FIFTH DAYS FOLLOWING INITIATION
     Route: 065
  4. NALOXONE [Suspect]
     Active Substance: NALOXONE
     Indication: TOXICITY TO VARIOUS AGENTS
     Dosage: 0.4MG
     Route: 065
  5. NALOXONE [Suspect]
     Active Substance: NALOXONE
     Dosage: AN ATTEMPT OF DOSE REDUCTION AFTER 12 HOURS WAS MADE
     Route: 065
  6. FLUMAZENIL. [Suspect]
     Active Substance: FLUMAZENIL
     Dosage: 2.4 MILLIGRAM DAILY;
     Route: 065
  7. ACETAMINOPHEN. [Suspect]
     Active Substance: ACETAMINOPHEN
     Indication: INTENTIONAL OVERDOSE
     Dosage: 4875MG
     Route: 065
  8. NALOXONE [Suspect]
     Active Substance: NALOXONE
     Dosage: 24 MILLIGRAM DAILY;
     Route: 065
  9. CLONAZEPAM. [Suspect]
     Active Substance: CLONAZEPAM
     Indication: INTENTIONAL OVERDOSE
     Dosage: 120MG
     Route: 065
  10. NALOXONE [Suspect]
     Active Substance: NALOXONE
     Dosage: 1MG
     Route: 065

REACTIONS (4)
  - Toxicity to various agents [Unknown]
  - Drug withdrawal syndrome [Recovered/Resolved]
  - Intentional overdose [Unknown]
  - Drug ineffective [Unknown]
